FAERS Safety Report 9230990 (Version 1)
Quarter: 2013Q2

REPORT INFORMATION
  Report Type: Report from Study
  Country: IL (occurrence: IL)
  Receive Date: 20130415
  Receipt Date: 20130415
  Transmission Date: 20140414
  Serious: Yes (Other)
  Sender: FDA-Public Use
  Company Number: IL-ROXANE LABORATORIES, INC.-2008-DE-07748GD

PATIENT
  Age: 65 Year
  Sex: Female

DRUGS (7)
  1. MORPHINE [Suspect]
     Indication: PAIN
     Dosage: 200 MG
  2. NSAID^S [Suspect]
     Indication: PAIN
  3. MEPERIDINE [Suspect]
     Indication: PAIN
     Dosage: BOLUSES (75 MG)
     Route: 030
  4. ANALGESICS [Suspect]
     Indication: PAIN
  5. KETAMINE [Concomitant]
     Indication: PAIN
     Dosage: 500 MG
  6. PHENOL [Concomitant]
     Indication: PAIN
     Dosage: 0.8 ML
     Route: 037
  7. OXYCODONE [Concomitant]
     Indication: PAIN
     Dosage: 20 MG

REACTIONS (6)
  - Drug ineffective [Unknown]
  - Drug dependence [Unknown]
  - Drug tolerance [Unknown]
  - Pneumonia [Unknown]
  - Sepsis [Unknown]
  - Somnolence [Unknown]
